FAERS Safety Report 14226644 (Version 1)
Quarter: 2017Q4

REPORT INFORMATION
  Report Type: Spontaneous
  Country: LB (occurrence: LB)
  Receive Date: 20171127
  Receipt Date: 20171127
  Transmission Date: 20180321
  Serious: Yes (Death, Other)
  Sender: FDA-Public Use
  Company Number: LB-BRISTOL-MYERS SQUIBB COMPANY-BMS-2017-107224

PATIENT
  Sex: Male

DRUGS (1)
  1. OPDIVO [Suspect]
     Active Substance: NIVOLUMAB
     Indication: LUNG ADENOCARCINOMA
     Dosage: 200 MG, Q2WK
     Route: 042
     Dates: start: 201703

REACTIONS (1)
  - Death [Fatal]
